FAERS Safety Report 18657456 (Version 1)
Quarter: 2020Q4

REPORT INFORMATION
  Report Type: Spontaneous
  Country: JP (occurrence: JP)
  Receive Date: 20201223
  Receipt Date: 20201223
  Transmission Date: 20210114
  Serious: Yes (Hospitalization)
  Sender: FDA-Public Use
  Company Number: JP-FERRINGPH-2020FE09187

PATIENT
  Age: 4 Decade
  Sex: Female

DRUGS (2)
  1. MINIRINMELT [Suspect]
     Active Substance: DESMOPRESSIN ACETATE
     Indication: PRODUCT USED FOR UNKNOWN INDICATION
     Dosage: 60 UG, 2 TIMES DAILY (ONE TABLET AFTER BREAKFAST, AND ONE TABLET BEFORE BEDTIME)
     Route: 060
     Dates: start: 2020
  2. DESMOPRESSIN KYOWA [Suspect]
     Active Substance: DESMOPRESSIN
     Indication: PRODUCT USED FOR UNKNOWN INDICATION
     Route: 065

REACTIONS (5)
  - Product use complaint [Unknown]
  - Product quality issue [Unknown]
  - Therapeutic response decreased [Unknown]
  - Product solubility abnormal [Unknown]
  - Dehydration [Unknown]
